FAERS Safety Report 6982778-6 (Version None)
Quarter: 2010Q3

REPORT INFORMATION
  Report Type: 
  Country: None (occurrence: None)
  Receive Date: 20100914
  Receipt Date: 20100308
  Transmission Date: 20110219
  Serious: No
  Sender: FDA-Public Use
  Company Number: US-PFIZER INC-2010030777

PATIENT
  Sex: Female
  Weight: 44.9 kg

DRUGS (9)
  1. LYRICA [Suspect]
     Indication: SPINAL COLUMN STENOSIS
     Dosage: UNK
     Route: 048
     Dates: start: 20090910, end: 20090912
  2. IMDUR [Concomitant]
     Dosage: UNK
  3. LASIX [Concomitant]
     Dosage: UNK
  4. LOPRESSOR [Concomitant]
     Dosage: UNK
  5. PLAVIX [Concomitant]
     Dosage: UNK
  6. COENZYME Q10 [Concomitant]
     Dosage: UNK
  7. POTASSIUM [Concomitant]
  8. ACETYLSALICYLIC ACID [Concomitant]
  9. DIGOXIN [Concomitant]
     Dosage: UNK

REACTIONS (2)
  - FALL [None]
  - INCOHERENT [None]
